FAERS Safety Report 5403110-5 (Version None)
Quarter: 2007Q3

REPORT INFORMATION
  Report Type: 
  Country: None (occurrence: None)
  Receive Date: 20070801
  Receipt Date: 20061124
  Transmission Date: 20080115
  Serious: Yes (Death)
  Sender: FDA-Public Use
  Company Number: DE-PFIZER INC-2006032614

PATIENT
  Sex: Female
  Weight: 45 kg

DRUGS (6)
  1. SU-011,248 [Suspect]
     Indication: METASTATIC RENAL CELL CARCINOMA
     Route: 048
     Dates: start: 20060217, end: 20060228
  2. DIPYRONE TAB [Concomitant]
     Route: 048
     Dates: start: 20051101, end: 20060303
  3. SOTALOL HYDROCHLORIDE [Concomitant]
     Route: 048
     Dates: start: 20051101, end: 20060303
  4. METOCLOPRAMIDE [Concomitant]
     Route: 048
     Dates: start: 20051101, end: 20060303
  5. ADUMBRAN [Concomitant]
     Route: 048
     Dates: start: 20060101, end: 20060303
  6. MORPHINE [Concomitant]
     Route: 048
     Dates: start: 20051101, end: 20060303

REACTIONS (3)
  - DYSPNOEA [None]
  - HEPATIC FAILURE [None]
  - OEDEMA PERIPHERAL [None]
